FAERS Safety Report 9163999 (Version 1)
Quarter: 2012Q4

REPORT INFORMATION
  Report Type: 
  Country: US (occurrence: US)
  Receive Date: 20121129
  Receipt Date: 20121129
  Transmission Date: 20130627
  Serious: Yes (Other)
  Sender: FDA-Public Use
  Company Number: CTI_01274_2010

PATIENT
  Sex: Female
  Weight: 121 kg

DRUGS (2)
  1. ZYFLO CR [Suspect]
     Indication: ASTHMA
     Route: 048
     Dates: start: 200901, end: 2009
  2. ZYFLO CR [Suspect]
     Dosage: DF
     Route: 048
     Dates: start: 201004, end: 2010

REACTIONS (13)
  - Haemoglobin decreased [Recovering/Resolving]
  - Impaired work ability [Unknown]
  - Asthma [Not Recovered/Not Resolved]
  - Platelet count decreased [Recovering/Resolving]
  - White blood cell count decreased [Recovering/Resolving]
  - Splenomegaly [Unknown]
  - Malaise [Recovering/Resolving]
  - Anti-platelet antibody [Not Recovered/Not Resolved]
  - Blood iron decreased [Recovering/Resolving]
  - Generalised oedema [Recovering/Resolving]
  - Dyspnoea [Recovering/Resolving]
  - Bone marrow failure [Recovering/Resolving]
  - Aspiration bone marrow abnormal [Recovering/Resolving]
